FAERS Safety Report 4957586-8 (Version None)
Quarter: 2006Q1

REPORT INFORMATION
  Report Type: 
  Country: None (occurrence: None)
  Receive Date: 20060324
  Receipt Date: 20060315
  Transmission Date: 20060701
  Serious: Yes (Hospitalization)
  Sender: FDA-Public Use
  Company Number: 24623

PATIENT
  Age: 38 Year
  Sex: Female

DRUGS (1)
  1. NIASPAN [Suspect]
     Indication: HYPERTRIGLYCERIDAEMIA
     Dosage: 1000 MG BID

REACTIONS (2)
  - HEPATIC STEATOSIS [None]
  - HEPATOTOXICITY [None]
